FAERS Safety Report 16058709 (Version 4)
Quarter: 2019Q2

REPORT INFORMATION
  Report Type: Spontaneous
  Country: TW (occurrence: TW)
  Receive Date: 20190311
  Receipt Date: 20190510
  Transmission Date: 20190711
  Serious: Yes (Death, Hospitalization)
  Sender: FDA-Public Use
  Company Number: TW-PFIZER INC-2019044400

PATIENT
  Age: 36 Year
  Sex: Male

DRUGS (2)
  1. SUTENT [Suspect]
     Active Substance: SUNITINIB MALATE
     Indication: RENAL CELL CARCINOMA
     Dosage: 50 MG, CYCLIC (2 WEEKS ON AND 2 WEEKS OFF)
     Route: 048
     Dates: start: 20181218
  2. SUTENT [Suspect]
     Active Substance: SUNITINIB MALATE
     Dosage: 37.5 MG, CYCLIC 8(12.5 MG X 3) ONCE DAILY, 2 WEEKS ON AND 2 WEEK OFF)
     Dates: start: 20190321, end: 20190412

REACTIONS (10)
  - Palmar-plantar erythrodysaesthesia syndrome [Unknown]
  - White blood cell count decreased [Unknown]
  - Fatigue [Unknown]
  - Yellow skin [Unknown]
  - Sepsis [Fatal]
  - Liver function test increased [Unknown]
  - Hypogeusia [Unknown]
  - Renal function test abnormal [Unknown]
  - Haematuria [Not Recovered/Not Resolved]
  - Generalised oedema [Not Recovered/Not Resolved]

NARRATIVE: CASE EVENT DATE: 20190421
